FAERS Safety Report 8228487 (Version 2)
Quarter: 2013Q4

REPORT INFORMATION
  Report Type: Spontaneous
  Country: DE (occurrence: None)
  Receive Date: 20111026
  Receipt Date: 20131017
  Transmission Date: 20140711
  Serious: Yes (Hospitalization)
  Sender: FDA-Public Use
  Company Number: 2011DE0299

PATIENT
  Age: 20 Year
  Sex: Male

DRUGS (2)
  1. KINERET [Suspect]
     Indication: STILL^S DISEASE ADULT ONSET
     Dosage: 100 MG PER DAY
     Dates: start: 20110713, end: 201109
  2. PREDNISOLONE(PREDNISOLONE) [Concomitant]

REACTIONS (3)
  - Acute hepatic failure [None]
  - Jaundice [None]
  - Pyrexia [None]
